FAERS Safety Report 8046089 (Version 4)
Quarter: 2012Q4

REPORT INFORMATION
  Report Type: Spontaneous
  Country: GB (occurrence: None)
  Receive Date: 20110707
  Receipt Date: 20120820
  Transmission Date: 20130627
  Serious: Yes (Hospitalization)
  Sender: FDA-Public Use
  Company Number: 2011AP001289

PATIENT
  Age: 62 Year
  Sex: Male

DRUGS (19)
  1. LEFLUNOMIDE [Suspect]
     Indication: RHEUMATOID ARTHRITIS
     Dosage: 20 MG; QD
     Dates: end: 20110527
  2. NIFEDIPINE [Concomitant]
  3. ATENOLOL [Concomitant]
  4. BEZAFIBRATE (BEZAFIBRATE) [Concomitant]
  5. CALCIUM CARBONATE [Concomitant]
  6. COLECALCIFEROL (COLECALCIFEROL) [Concomitant]
  7. ETANERCEPT (ETANERCEPT) [Concomitant]
  8. FOLIC ACID [Concomitant]
  9. GABAPENTIN [Concomitant]
  10. NITROGLYCERIN [Concomitant]
  11. LISINOPRIL [Concomitant]
  12. MEBEVERINE (MEBEVERINE) [Concomitant]
  13. OMEPRAZOLE [Concomitant]
  14. PRAVASTATIN [Concomitant]
  15. PREDNISOLONE [Concomitant]
  16. TRAMADOL HYDROCHLORIDE [Concomitant]
  17. ASPIRIN [Concomitant]
  18. WARFARIN SODIUM [Concomitant]
  19. VITAMIN D3 (COLELCALCIFEROL) [Concomitant]

REACTIONS (7)
  - ANAEMIA [None]
  - BONE MARROW TOXICITY [None]
  - PANCYTOPENIA [None]
  - RECTAL HAEMORRHAGE [None]
  - FEBRILE NEUTROPENIA [None]
  - NEUTROPENIC SEPSIS [None]
  - PLATELET COUNT DECREASED [None]
